FAERS Safety Report 9062200 (Version 1)
Quarter: 2013Q1

REPORT INFORMATION
  Report Type: Spontaneous
  Country: CA (occurrence: CA)
  Receive Date: 20130129
  Receipt Date: 20130129
  Transmission Date: 20140127
  Serious: Yes (Disabling, Other)
  Sender: FDA-Public Use
  Company Number: CA-ELI_LILLY_AND_COMPANY-CA201301005798

PATIENT
  Age: 84 Year
  Sex: Female
  Weight: 38.1 kg

DRUGS (15)
  1. FORTEO [Suspect]
     Indication: OSTEOPOROSIS
     Dosage: 20 UG, QD
     Route: 058
     Dates: start: 20120209
  2. COUMADIN [Concomitant]
     Dosage: UNK, UNKNOWN
     Route: 065
  3. AVAPRO [Concomitant]
     Dosage: UNK, UNKNOWN
     Route: 065
  4. DILTIAZEM CD [Concomitant]
     Dosage: UNK, UNKNOWN
     Route: 065
  5. FERROUS SULFATE [Concomitant]
     Dosage: UNK, UNKNOWN
     Route: 065
  6. METOPROLOL [Concomitant]
     Dosage: UNK, UNKNOWN
     Route: 065
  7. FUROSEMIDE [Concomitant]
     Dosage: UNK, UNKNOWN
     Route: 065
  8. ZAROXOLYN [Concomitant]
     Dosage: UNK, UNKNOWN
     Route: 065
  9. RASILEZ [Concomitant]
     Dosage: UNK, UNKNOWN
     Route: 065
  10. GLYBURIDE [Concomitant]
     Dosage: UNK, UNKNOWN
     Route: 065
  11. METFORMIN [Concomitant]
     Dosage: UNK, UNKNOWN
     Route: 065
  12. D-TABS [Concomitant]
     Dosage: UNK, UNKNOWN
     Route: 065
  13. PRAVASTATIN [Concomitant]
     Dosage: UNK, UNKNOWN
     Route: 065
  14. NITRODUR [Concomitant]
     Dosage: UNK, UNKNOWN
     Route: 065
  15. EMO CORT [Concomitant]
     Dosage: UNK, UNKNOWN
     Route: 065

REACTIONS (2)
  - Finger deformity [Not Recovered/Not Resolved]
  - Gout [Not Recovered/Not Resolved]
